FAERS Safety Report 5483506-6 (Version None)
Quarter: 2007Q4

REPORT INFORMATION
  Report Type: 
  Country: None (occurrence: None)
  Receive Date: 20071009
  Receipt Date: 20070926
  Transmission Date: 20080405
  Serious: Yes (Hospitalization, Other)
  Sender: FDA-Public Use
  Company Number: 2007EN000223

PATIENT
  Age: 48 Year
  Sex: Female
  Weight: 90.7194 kg

DRUGS (11)
  1. OPANA ER [Suspect]
     Indication: BACK PAIN
     Dosage: 120 MG; BID
     Dates: start: 20060601
  2. OPANA ER [Suspect]
     Indication: FIBROMYALGIA
     Dosage: 120 MG; BID
     Dates: start: 20060601
  3. IMITREX [Suspect]
     Indication: MIGRAINE
     Dosage: 100 MG; PRN; PO
     Route: 048
     Dates: start: 20000101
  4. IMITREX [Suspect]
     Indication: MIGRAINE
     Dosage: PRN; NAS
     Route: 045
     Dates: start: 20000101
  5. HYDROMORPHONE HCL [Concomitant]
  6. TRAZODONE HCL [Concomitant]
  7. CYMBALTA [Concomitant]
  8. ZANAFLEX [Concomitant]
  9. PREVACID [Concomitant]
  10. SYNTHROID [Concomitant]
  11. ASPIRIN [Concomitant]

REACTIONS (4)
  - CARDIAC FAILURE CONGESTIVE [None]
  - PARAESTHESIA [None]
  - TRANSIENT ISCHAEMIC ATTACK [None]
  - WEIGHT INCREASED [None]
